FAERS Safety Report 13602388 (Version 4)
Quarter: 2017Q3

REPORT INFORMATION
  Report Type: Report from Study
  Country: None (occurrence: DE)
  Receive Date: 20170601
  Receipt Date: 20170922
  Transmission Date: 20171127
  Serious: Yes (Death, Hospitalization)
  Sender: FDA-Public Use
  Company Number: DE-ABBVIE-17K-062-1993766-00

PATIENT
  Age: 67 Year
  Sex: Male

DRUGS (8)
  1. DUODOPA [Suspect]
     Active Substance: CARBIDOPA\LEVODOPA
     Indication: PARKINSON^S DISEASE
     Dosage: MD 6.5 ML; CRD 8.2 ML/H; CRN 3.2 ML/H; ED 3.0 ML
     Route: 050
     Dates: start: 20100226
  2. VITAMIN D [Concomitant]
     Active Substance: CHOLECALCIFEROL
     Indication: PRODUCT USED FOR UNKNOWN INDICATION
  3. VITAMIN B12 [Concomitant]
     Active Substance: CYANOCOBALAMIN
     Indication: PRODUCT USED FOR UNKNOWN INDICATION
  4. FOLIC ACID. [Concomitant]
     Active Substance: FOLIC ACID
     Indication: PRODUCT USED FOR UNKNOWN INDICATION
  5. AMANTADIN [Concomitant]
     Active Substance: AMANTADINE
     Indication: PRODUCT USED FOR UNKNOWN INDICATION
  6. MIRTAZAPIN [Concomitant]
     Active Substance: MIRTAZAPINE
     Indication: PRODUCT USED FOR UNKNOWN INDICATION
  7. VITAMINE B COMPLEX [Concomitant]
     Indication: PRODUCT USED FOR UNKNOWN INDICATION
  8. RAMIPRIL. [Concomitant]
     Active Substance: RAMIPRIL
     Indication: PRODUCT USED FOR UNKNOWN INDICATION

REACTIONS (7)
  - Acute respiratory failure [Recovering/Resolving]
  - Cardiac failure [Fatal]
  - Secretion discharge [Not Recovered/Not Resolved]
  - Respiratory failure [Fatal]
  - Painful respiration [Not Recovered/Not Resolved]
  - Dyspnoea [Not Recovered/Not Resolved]
  - Pyrexia [Not Recovered/Not Resolved]

NARRATIVE: CASE EVENT DATE: 201705
